FAERS Safety Report 9555997 (Version 1)
Quarter: 2013Q3

REPORT INFORMATION
  Report Type: Spontaneous
  Country: US (occurrence: None)
  Receive Date: 20130813
  Receipt Date: 20130813
  Transmission Date: 20140515
  Serious: Yes (Other)
  Sender: FDA-Public Use
  Company Number: 2012AT000552

PATIENT
  Age: 70 Year
  Sex: Male

DRUGS (5)
  1. EDEX [Suspect]
     Indication: ERECTILE DYSFUNCTION
     Dosage: 20 UG ; TIW ; ICAN
     Dates: start: 201207
  2. CLONAZEPAM [Concomitant]
  3. ATORVASTATIN [Concomitant]
  4. BUPROPION [Concomitant]
  5. CIALIS [Concomitant]

REACTIONS (1)
  - Priapism [None]
